FAERS Safety Report 5097558-9 (Version None)
Quarter: 2006Q3

REPORT INFORMATION
  Report Type: 
  Country: None (occurrence: None)
  Receive Date: 20060901
  Receipt Date: 20060823
  Transmission Date: 20061208
  Serious: Yes (Hospitalization)
  Sender: FDA-Public Use
  Company Number: 2006091165

PATIENT
  Age: 87 Year
  Sex: Male
  Weight: 78 kg

DRUGS (7)
  1. AMLODIPINE [Suspect]
     Indication: DRUG USE FOR UNKNOWN INDICATION
     Dosage: 5 MG (INTERVAL:  EVERY DAY),  ORAL
     Route: 048
  2. NITROGLYCERIN [Suspect]
     Indication: DRUG USE FOR UNKNOWN INDICATION
     Dosage: 5 MG, TOPICAL
     Route: 061
  3. PERINDOPRIL ERBUMINE [Suspect]
     Indication: DRUG USE FOR UNKNOWN INDICATION
     Dosage: 2 MG (1 IN 1 D), ORAL
     Route: 048
  4. FUROSEMIDE [Suspect]
     Indication: DRUG USE FOR UNKNOWN INDICATION
     Dosage: 20 MG (1 IN 1 D), ORAL
     Route: 048
  5. DIGOXIN [Concomitant]
  6. SERETIDE (FLUTICASONE PROPIONATE, SALMETEROL XINAFOATE) [Concomitant]
  7. ALPRAZOLAM ((ALPROZALAM) [Concomitant]

REACTIONS (8)
  - BRONCHIAL DISORDER [None]
  - CHEST INJURY [None]
  - DRUG INTERACTION [None]
  - FALL [None]
  - HYPOTENSION [None]
  - MUSCLE DISORDER [None]
  - PYREXIA [None]
  - RIB FRACTURE [None]
